FAERS Safety Report 8475178-3 (Version None)
Quarter: 2012Q2

REPORT INFORMATION
  Report Type: 
  Country: None (occurrence: None)
  Receive Date: 20120628
  Receipt Date: 20120615
  Transmission Date: 20120825
  Serious: Yes (Hospitalization)
  Sender: FDA-Public Use
  Company Number: DE-PFIZER INC-DE-WYE-H06020708

PATIENT
  Age: 62 Year
  Sex: Male
  Weight: 84 kg

DRUGS (11)
  1. URSO FALK [Concomitant]
     Dosage: UNK
     Route: 065
  2. SIROLIMUS [Suspect]
     Indication: PROPHYLAXIS AGAINST TRANSPLANT REJECTION
     Dosage: 3.0 MG, 1X/DAY
     Route: 048
     Dates: start: 20071227, end: 20080908
  3. TACROLIMUS [Concomitant]
     Dosage: UNK
     Route: 065
     Dates: start: 20071107
  4. CONCOR [Concomitant]
     Indication: HYPERTENSION
     Dosage: 5 MG, 1X/DAY
  5. ACETYLSALICYLIC ACID [Concomitant]
     Dosage: UNK
     Route: 065
  6. H-BIG [Concomitant]
     Dosage: UNK
     Route: 065
  7. PANTOPRAZOLE [Concomitant]
     Dosage: UNK
     Route: 065
  8. TORSEMIDE [Concomitant]
     Dosage: UNK
     Route: 065
  9. LAMIVUDINE [Concomitant]
     Dosage: UNK
     Route: 065
  10. RAMIPRIL [Concomitant]
     Dosage: UNK
     Route: 065
  11. AMLODIPINE [Concomitant]
     Dosage: UNK
     Route: 065

REACTIONS (5)
  - SKIN ULCER [None]
  - ERYSIPELAS [None]
  - PROTEINURIA [None]
  - APHTHOUS STOMATITIS [None]
  - OEDEMA [None]
